FAERS Safety Report 4432317-9 (Version None)
Quarter: 2004Q3

REPORT INFORMATION
  Report Type: 
  Country: None (occurrence: None)
  Receive Date: 20040820
  Receipt Date: 20040806
  Transmission Date: 20050211
  Serious: Yes (Hospitalization)
  Sender: FDA-Public Use
  Company Number: 233853K04USA

PATIENT
  Age: 34 Year
  Sex: Female
  Weight: 111 kg

DRUGS (1)
  1. REBIF [Suspect]
     Indication: MULTIPLE SCLEROSIS
     Dosage: 44 MCG, 3 IN 1 WEEKS
     Dates: start: 20020916

REACTIONS (12)
  - ABDOMINAL PAIN LOWER [None]
  - CARCINOMA IN SITU [None]
  - CERVICAL DYSPLASIA [None]
  - CONDYLOMA ACUMINATUM [None]
  - CYST RUPTURE [None]
  - DYSPLASIA [None]
  - ENDOMETRIOSIS [None]
  - FATIGUE [None]
  - HUMAN PAPILLOMA VIRUS SEROLOGY TEST POSITIVE [None]
  - INJECTION SITE ERYTHEMA [None]
  - MENSTRUATION IRREGULAR [None]
  - SMEAR CERVIX ABNORMAL [None]
